FAERS Safety Report 7337374-8 (Version None)
Quarter: 2011Q1

REPORT INFORMATION
  Report Type: 
  Country: None (occurrence: None)
  Receive Date: 20110307
  Receipt Date: 20110307
  Transmission Date: 20110831
  Serious: Yes (Life-Threatening, Hospitalization, Other)
  Sender: FDA-Public Use
  Company Number: None

PATIENT
  Age: 6 Year
  Sex: Female
  Weight: 21.7727 kg

DRUGS (1)
  1. TRIAD ALCOHOL WIPES TRIAD [Suspect]
     Indication: INFECTION
     Dosage: 5 TIMES PER TREATMENT 3X IV
     Route: 042
     Dates: start: 20101127, end: 20101212

REACTIONS (1)
  - DEVICE RELATED INFECTION [None]
